FAERS Safety Report 6184464-1 (Version None)
Quarter: 2009Q2

REPORT INFORMATION
  Report Type: 
  Country: None (occurrence: None)
  Receive Date: 20090507
  Receipt Date: 20090507
  Transmission Date: 20091009
  Serious: Yes (Death, Life-Threatening, Hospitalization)
  Sender: FDA-Public Use
  Company Number: None

PATIENT
  Age: 68 Year
  Sex: Female
  Weight: 65.7716 kg

DRUGS (6)
  1. CARDIZEM [Suspect]
     Indication: ATRIAL FIBRILLATION
     Dosage: 25 MG IV PUSH TWICE DAILY 15 MIN APART ON 2-12-200
     Route: 042
     Dates: start: 20090210
  2. CARDIZEM [Suspect]
     Indication: ATRIAL FLUTTER
     Dosage: 25 MG IV PUSH TWICE DAILY 15 MIN APART ON 2-12-200
     Route: 042
     Dates: start: 20090210
  3. CARDIZEM [Suspect]
     Indication: ATRIAL FIBRILLATION
     Dosage: 25 MG IV PUSH TWICE DAILY 15 MIN APART ON 2-12-200
     Route: 042
     Dates: start: 20090211
  4. CARDIZEM [Suspect]
     Indication: ATRIAL FLUTTER
     Dosage: 25 MG IV PUSH TWICE DAILY 15 MIN APART ON 2-12-200
     Route: 042
     Dates: start: 20090211
  5. CARDIZEM [Suspect]
     Indication: ATRIAL FIBRILLATION
     Dosage: 25 MG IV PUSH TWICE DAILY 15 MIN APART ON 2-12-200
     Route: 042
     Dates: start: 20090212
  6. CARDIZEM [Suspect]
     Indication: ATRIAL FLUTTER
     Dosage: 25 MG IV PUSH TWICE DAILY 15 MIN APART ON 2-12-200
     Route: 042
     Dates: start: 20090212

REACTIONS (2)
  - CARDIO-RESPIRATORY ARREST [None]
  - TORSADE DE POINTES [None]
